FAERS Safety Report 8912457 (Version 2)
Quarter: 2012Q4

REPORT INFORMATION
  Report Type: 
  Country: BR (occurrence: BR)
  Receive Date: 20121116
  Receipt Date: 20121218
  Transmission Date: 20130627
  Serious: Yes (Hospitalization, Other)
  Sender: FDA-Public Use
  Company Number: BR-ABBOTT-12P-020-1006536-00

PATIENT
  Age: 56 Year
  Sex: Male
  Weight: 118 kg

DRUGS (5)
  1. DEPAKOTE [Suspect]
     Indication: DEPRESSION
     Dosage: 1 in the morning, 1 at night
     Route: 048
  2. PROCARBAZINE HYDROCHLORIDE [Suspect]
     Indication: PRODUCT USED FOR UNKNOWN INDICATION
     Dosage: 1 tablet in the morning
     Route: 048
  3. LIPLESS [Concomitant]
     Indication: BLOOD TRIGLYCERIDES
     Route: 048
  4. DIAZEPAM [Concomitant]
     Indication: SLEEP DISORDER THERAPY
     Dosage: 1 tablet in the morning; 1 at night
     Route: 048
  5. DIAZEPAM [Concomitant]
     Indication: ANXIETY
     Dosage: 1 tablet at night
     Route: 048

REACTIONS (14)
  - Myocardial infarction [Recovered/Resolved]
  - Feeling jittery [Recovered/Resolved]
  - Aggression [Recovered/Resolved]
  - Tremor [Recovered/Resolved]
  - Somnolence [Recovered/Resolved]
  - Blood triglycerides increased [Unknown]
  - Blood glucose increased [Unknown]
  - Off label use [Unknown]
  - Tearfulness [Unknown]
  - Abasia [Not Recovered/Not Resolved]
  - Depression [Unknown]
  - Cardiac disorder [Not Recovered/Not Resolved]
  - Bedridden [Not Recovered/Not Resolved]
  - Walking aid user [Not Recovered/Not Resolved]
